FAERS Safety Report 9832704 (Version 2)
Quarter: 2014Q1

REPORT INFORMATION
  Report Type: Spontaneous
  Country: US (occurrence: US)
  Receive Date: 20140121
  Receipt Date: 20140207
  Transmission Date: 20141002
  Serious: No
  Sender: FDA-Public Use
  Company Number: US-PFIZER INC-2014017128

PATIENT
  Age: 44 Year
  Sex: Male
  Weight: 136 kg

DRUGS (4)
  1. LYRICA [Suspect]
     Indication: FIBROMYALGIA
     Dosage: 75 MG, UNK
  2. LYRICA [Suspect]
     Indication: DIABETIC NEUROPATHY
     Dosage: 150 MG, 2X/DAY (MORNING AND NIGHT)
  3. NOVOLOG [Concomitant]
     Dosage: AN UNKNOWN DOSE (AT SLIDING SCALE) DAILY
  4. LEVEMIR [Concomitant]
     Dosage: 25 IU, DAILY AT NIGHT

REACTIONS (3)
  - Blister [Recovered/Resolved]
  - Hypoaesthesia [Recovered/Resolved]
  - Pain in extremity [Recovered/Resolved]
